FAERS Safety Report 9611680 (Version 1)
Quarter: 2013Q4

REPORT INFORMATION
  Report Type: Spontaneous
  Country: US (occurrence: US)
  Receive Date: 20131010
  Receipt Date: 20131010
  Transmission Date: 20140711
  Serious: No
  Sender: FDA-Public Use
  Company Number: US-PFIZER INC-2013286641

PATIENT
  Age: 79 Year
  Sex: Female

DRUGS (1)
  1. THROMBIN [Suspect]
     Indication: WOUND HAEMORRHAGE
     Dosage: UNK
     Dates: start: 201307, end: 201307

REACTIONS (1)
  - Thrombosis [Unknown]
